FAERS Safety Report 23064043 (Version 1)
Quarter: 2023Q4

REPORT INFORMATION
  Report Type: Spontaneous
  Country: US (occurrence: US)
  Receive Date: 20231013
  Receipt Date: 20231013
  Transmission Date: 20240109
  Serious: Yes (Hospitalization, Other)
  Sender: FDA-Public Use
  Company Number: US-AMNEAL PHARMACEUTICALS-2023-AMRX-03542

PATIENT
  Age: 21 Year
  Sex: Female

DRUGS (1)
  1. VENLAFAXINE HYDROCHLORIDE [Suspect]
     Active Substance: VENLAFAXINE HYDROCHLORIDE
     Indication: Product used for unknown indication
     Dosage: 14,100 MG
     Route: 065

REACTIONS (6)
  - Cardiogenic shock [Recovering/Resolving]
  - Multiple organ dysfunction syndrome [Unknown]
  - Electrocardiogram QT prolonged [Recovering/Resolving]
  - Generalised tonic-clonic seizure [Unknown]
  - Suicide attempt [Unknown]
  - Intentional overdose [Unknown]
